FAERS Safety Report 6976657-8 (Version None)
Quarter: 2010Q3

REPORT INFORMATION
  Report Type: 
  Country: None (occurrence: None)
  Receive Date: 20100910
  Receipt Date: 20100831
  Transmission Date: 20110219
  Serious: Yes (Other)
  Sender: FDA-Public Use
  Company Number: IT-PFIZER INC-2010109909

PATIENT
  Sex: Female

DRUGS (2)
  1. LYRICA [Suspect]
     Indication: GENERALISED ANXIETY DISORDER
     Dosage: 75 MG, 2X/DAY
  2. LYRICA [Suspect]
     Dosage: 75 MG, 1X/DAY

REACTIONS (5)
  - DECREASED APPETITE [None]
  - MYALGIA [None]
  - PANIC DISORDER [None]
  - TACHYCARDIA [None]
  - VERTIGO [None]
